FAERS Safety Report 5569579-0 (Version None)
Quarter: 2007Q4

REPORT INFORMATION
  Report Type: 
  Country: None (occurrence: None)
  Receive Date: 20071220
  Receipt Date: 20071207
  Transmission Date: 20080405
  Serious: Yes (Other)
  Sender: FDA-Public Use
  Company Number: GB-RANBAXY-2007RR-11986

PATIENT

DRUGS (5)
  1. LISINOPRIL [Suspect]
     Indication: HYPERTENSION
     Dosage: 10 MG, UNK
     Route: 048
     Dates: start: 20071114, end: 20071120
  2. AMLODIPINE [Concomitant]
     Indication: HYPERTENSION
     Dosage: 5 DF, UNK
     Route: 048
     Dates: start: 20070606
  3. ASPIRIN TABLETS BP 300MG [Concomitant]
     Indication: HYPERTENSION
     Dosage: 75 UNK, UNK
     Route: 048
     Dates: start: 20041104
  4. BENDROFLUAZIDE [Concomitant]
     Indication: HYPERTENSION
     Dosage: 2.5 DF, UNK
     Route: 048
     Dates: start: 20040615
  5. ZOLPIDEM [Concomitant]
     Indication: INSOMNIA
     Dosage: 10 DF, UNK
     Route: 048
     Dates: start: 20031117

REACTIONS (5)
  - DYSPNOEA [None]
  - FATIGUE [None]
  - LIP SWELLING [None]
  - MOUTH ULCERATION [None]
  - WHEEZING [None]
